FAERS Safety Report 7099816-5 (Version None)
Quarter: 2010Q4

REPORT INFORMATION
  Report Type: 
  Country: None (occurrence: None)
  Receive Date: 20101112
  Receipt Date: 20101102
  Transmission Date: 20110411
  Serious: Yes (Death, Life-Threatening, Hospitalization, Other)
  Sender: FDA-Public Use
  Company Number: JP-CELGENEUS-087-21880-10082960

PATIENT
  Sex: Female

DRUGS (12)
  1. REVLIMID [Suspect]
     Indication: MULTIPLE MYELOMA
     Route: 048
     Dates: start: 20100820, end: 20100826
  2. LENADEX [Suspect]
     Indication: MULTIPLE MYELOMA
     Route: 048
     Dates: start: 20100820, end: 20100823
  3. ARIMIDEX [Concomitant]
     Indication: BREAST CANCER
     Route: 048
     Dates: start: 20100208, end: 20100828
  4. CANDESARTAN CILEXETIL [Concomitant]
     Indication: HYPERTENSION
     Route: 048
     Dates: start: 20100121, end: 20100828
  5. 8-HOUR BAYER [Concomitant]
     Indication: PROPHYLAXIS
     Route: 048
     Dates: start: 20091030, end: 20100828
  6. OMEPRAL [Concomitant]
     Indication: PROPHYLAXIS
     Route: 048
     Dates: start: 20100820, end: 20100826
  7. ATELEC [Concomitant]
     Indication: HYPERTENSION
     Route: 048
     Dates: start: 20091010, end: 20100828
  8. SIMVASTATIN [Concomitant]
     Route: 048
     Dates: start: 20091030, end: 20100828
  9. CEFZON [Concomitant]
     Indication: PYREXIA
     Route: 048
     Dates: start: 20100826, end: 20100828
  10. MUCOSTA [Concomitant]
     Indication: PROPHYLAXIS
     Route: 048
     Dates: start: 20100826, end: 20100827
  11. MOHRUS TAPE [Concomitant]
     Indication: MULTIPLE MYELOMA
     Route: 062
     Dates: start: 20100826, end: 20100828
  12. ATARAX [Concomitant]
     Indication: INSOMNIA
     Route: 065
     Dates: start: 20100801

REACTIONS (11)
  - BLOOD CREATINE PHOSPHOKINASE INCREASED [None]
  - C-REACTIVE PROTEIN INCREASED [None]
  - HEPATIC FAILURE [None]
  - MALAISE [None]
  - NEUTROPENIA [None]
  - PAIN [None]
  - PYREXIA [None]
  - SHOCK HAEMORRHAGIC [None]
  - THROMBOCYTOPENIA [None]
  - VENTRICULAR EXTRASYSTOLES [None]
  - VOMITING [None]
